FAERS Safety Report 7564570-7 (Version None)
Quarter: 2011Q2

REPORT INFORMATION
  Report Type: 
  Country: None (occurrence: None)
  Receive Date: 20110622
  Receipt Date: 20100722
  Transmission Date: 20111010
  Serious: Yes (Other)
  Sender: FDA-Public Use
  Company Number: US-MYLANLABS-2010S1009902

PATIENT
  Age: 38 Year
  Sex: Male
  Weight: 102.06 kg

DRUGS (9)
  1. CLOZAPINE [Suspect]
     Indication: SCHIZOAFFECTIVE DISORDER
     Route: 048
     Dates: start: 20100114, end: 20100609
  2. SEROQUEL [Concomitant]
     Dosage: DOSE TITRATED DOWN TO DISCONTINUATION
     Dates: start: 20100107
  3. BENADRYL [Concomitant]
     Dates: start: 20100127
  4. VASOTEC [Concomitant]
  5. ALBUTEROL SULFATE AUTOHALER [Concomitant]
  6. ABILIFY [Concomitant]
     Dates: start: 20100107
  7. CLOZAPINE [Suspect]
     Route: 048
     Dates: start: 20100614
  8. PROZAC [Concomitant]
     Dates: start: 20100107, end: 20100223
  9. HYDROCHLOROTHIAZIDE [Concomitant]

REACTIONS (1)
  - GRANULOCYTOPENIA [None]
